FAERS Safety Report 18815716 (Version 1)
Quarter: 2021Q1

REPORT INFORMATION
  Report Type: Spontaneous
  Country: US (occurrence: US)
  Receive Date: 20210130
  Receipt Date: 20210130
  Transmission Date: 20210419
  Serious: Yes (Hospitalization)
  Sender: FDA-Public Use
  Company Number: None

PATIENT
  Age: 70 Year
  Sex: Male
  Weight: 115.67 kg

DRUGS (1)
  1. LISINOPRIL (LISINOPRIL 40MG TAB) [Suspect]
     Active Substance: LISINOPRIL
     Indication: HYPERTENSION
     Route: 048
     Dates: start: 20061109, end: 20200817

REACTIONS (5)
  - Pruritus [None]
  - Oedema peripheral [None]
  - Urticaria [None]
  - Angioedema [None]
  - Eye oedema [None]

NARRATIVE: CASE EVENT DATE: 20200820
